FAERS Safety Report 6089441-7 (Version None)
Quarter: 2009Q1

REPORT INFORMATION
  Report Type: 
  Country: None (occurrence: None)
  Receive Date: 20090219
  Receipt Date: 20090205
  Transmission Date: 20090719
  Serious: Yes (Hospitalization)
  Sender: FDA-Public Use
  Company Number: 000373

PATIENT
  Sex: Male
  Weight: 86 kg

DRUGS (12)
  1. NEUPRO [Suspect]
     Indication: PARKINSON'S DISEASE
     Dosage: (2 MG QD TRANSDERMAL), (4 MG QD TRANSDERMAL), (6 MG QD TRANSDERMAL), 8 MG QD TRANSDERMAL)
     Route: 062
     Dates: start: 20070516, end: 20070530
  2. NEUPRO [Suspect]
     Indication: PARKINSON'S DISEASE
     Dosage: (2 MG QD TRANSDERMAL), (4 MG QD TRANSDERMAL), (6 MG QD TRANSDERMAL), 8 MG QD TRANSDERMAL)
     Route: 062
     Dates: start: 20070531, end: 20070831
  3. NEUPRO [Suspect]
     Indication: PARKINSON'S DISEASE
     Dosage: (2 MG QD TRANSDERMAL), (4 MG QD TRANSDERMAL), (6 MG QD TRANSDERMAL), 8 MG QD TRANSDERMAL)
     Route: 062
     Dates: start: 20070901, end: 20080826
  4. NEUPRO [Suspect]
     Indication: PARKINSON'S DISEASE
     Dosage: (2 MG QD TRANSDERMAL), (4 MG QD TRANSDERMAL), (6 MG QD TRANSDERMAL), 8 MG QD TRANSDERMAL)
     Route: 062
     Dates: start: 20080827
  5. LEVODOPA [Concomitant]
  6. ASPIRIN [Concomitant]
  7. METOPROLOL SUCCINATE [Concomitant]
  8. DIOVAN HCT [Concomitant]
  9. NITREPRESS [Concomitant]
  10. METFORMIN HCL [Concomitant]
  11. SULPIRID [Concomitant]
  12. CARBAMAZEPINE [Concomitant]

REACTIONS (1)
  - MYOCARDIAL INFARCTION [None]
